FAERS Safety Report 6378040-5 (Version None)
Quarter: 2009Q3

REPORT INFORMATION
  Report Type: 
  Country: None (occurrence: None)
  Receive Date: 20090925
  Receipt Date: 20081106
  Transmission Date: 20100115
  Serious: Yes (Other)
  Sender: FDA-Public Use
  Company Number: PHEH2008US11652

PATIENT
  Sex: Male

DRUGS (3)
  1. PAMIDRONATE DISODIUM [Suspect]
     Dosage: EVERY 3 MONTHS
  2. CALCIUM [Concomitant]
     Dosage: 2000 MEG
  3. VITAMIN D [Concomitant]
     Dosage: 1000 MEG

REACTIONS (2)
  - HIP ARTHROPLASTY [None]
  - RENAL DISORDER [None]
